FAERS Safety Report 19382949 (Version 1)
Quarter: 2021Q2

REPORT INFORMATION
  Report Type: Spontaneous
  Country: DE (occurrence: DE)
  Receive Date: 20210607
  Receipt Date: 20210607
  Transmission Date: 20210717
  Serious: Yes (Other)
  Sender: FDA-Public Use
  Company Number: DE-ALLERGAN-2117872US

PATIENT
  Sex: Male
  Weight: 72 kg

DRUGS (3)
  1. PREDNISOLONE. [Concomitant]
     Active Substance: PREDNISOLONE
     Indication: PULMONARY SARCOIDOSIS
     Dosage: 5 MG, QD
     Dates: start: 201609
  2. PREDNISOLONE. [Concomitant]
     Active Substance: PREDNISOLONE
     Dosage: 50 MG, QD
     Dates: start: 201603
  3. OZURDEX [Suspect]
     Active Substance: DEXAMETHASONE
     Indication: MACULAR OEDEMA
     Dosage: 0.7 MG, SINGLE
     Route: 031
     Dates: start: 20170210, end: 20170302

REACTIONS (10)
  - Photophobia [Recovering/Resolving]
  - Eye pain [Recovered/Resolved]
  - Visual acuity reduced [Recovered/Resolved with Sequelae]
  - Blepharospasm [Recovered/Resolved]
  - Corneal oedema [Not Recovered/Not Resolved]
  - Corneal degeneration [Unknown]
  - Device dislocation [Recovered/Resolved]
  - Injury corneal [Recovered/Resolved]
  - Vitreous floaters [Unknown]
  - Vision blurred [Unknown]

NARRATIVE: CASE EVENT DATE: 20170211
